FAERS Safety Report 5191122-9 (Version None)
Quarter: 2006Q4

REPORT INFORMATION
  Report Type: 
  Country: None (occurrence: None)
  Receive Date: 20061226
  Receipt Date: 20050315
  Transmission Date: 20070319
  Serious: Yes (Life-Threatening, Hospitalization, Disabling)
  Sender: FDA-Public Use
  Company Number: PHRM2005FR01078

PATIENT
  Age: 20 Year
  Sex: Male
  Weight: 70 kg

DRUGS (6)
  1. DEPAKENE [Suspect]
     Indication: PARTIAL SEIZURES
     Dosage: 1.6 G DAILY
     Route: 042
     Dates: end: 20041122
  2. TRILEPTAL [Suspect]
     Indication: PARTIAL SEIZURES
     Dosage: 600 MG, BID
     Route: 048
     Dates: start: 20050214, end: 20050221
  3. DEPAKENE [Suspect]
     Indication: PARTIAL SEIZURES
     Dosage: 1 G DAILY
     Route: 048
     Dates: start: 20041123, end: 20041123
  4. DEPAKENE [Suspect]
     Dosage: 1.5 G DAILY
     Dates: start: 20041124, end: 20050221
  5. ASPEGIC 325 [Suspect]
     Indication: INFLUENZA LIKE ILLNESS
     Dates: start: 20050201
  6. RIVOTRIL [Concomitant]
     Indication: PARTIAL SEIZURES

REACTIONS (29)
  - ACUTE RESPIRATORY DISTRESS SYNDROME [None]
  - ALOPECIA [None]
  - ASTHENIA [None]
  - BLOOD CREATINE PHOSPHOKINASE INCREASED [None]
  - BLOOD CREATINE PHOSPHOKINASE MB INCREASED [None]
  - BONE MARROW FAILURE [None]
  - C-REACTIVE PROTEIN INCREASED [None]
  - CORNEAL NEOVASCULARISATION [None]
  - CORNEAL TRANSPLANT [None]
  - DEPILATION [None]
  - DERMATITIS BULLOUS [None]
  - DYSPHAGIA [None]
  - HIGH DENSITY LIPOPROTEIN INCREASED [None]
  - INTUBATION [None]
  - IRIS ADHESIONS [None]
  - LEUKOPENIA [None]
  - LIFE SUPPORT [None]
  - LYMPHADENOPATHY [None]
  - MUCOUS MEMBRANE DISORDER [None]
  - PROTHROMBIN TIME RATIO DECREASED [None]
  - PYREXIA [None]
  - RASH ERYTHEMATOUS [None]
  - SCAB [None]
  - SKIN EXFOLIATION [None]
  - SYMBLEPHARON [None]
  - THROMBOCYTOPENIA [None]
  - TOXIC EPIDERMAL NECROLYSIS [None]
  - TRANSAMINASES INCREASED [None]
  - ULCERATIVE KERATITIS [None]
